FAERS Safety Report 8822288 (Version 1)
Quarter: 2012Q4

REPORT INFORMATION
  Report Type: 
  Country: US (occurrence: US)
  Receive Date: 20121003
  Receipt Date: 20121003
  Transmission Date: 20130627
  Serious: Yes (Hospitalization)
  Sender: FDA-Public Use
  Company Number: PHEH2012US018925

PATIENT
  Sex: Female

DRUGS (1)
  1. EXTAVIA [Suspect]
     Indication: MULTIPLE SCLEROSIS
     Dosage: 0.3 mg, QOD
     Route: 058
     Dates: start: 201101

REACTIONS (2)
  - Cellulitis [Recovered/Resolved]
  - Local reaction [Recovered/Resolved]
